FAERS Safety Report 4945251-2 (Version None)
Quarter: 2006Q1

REPORT INFORMATION
  Report Type: 
  Country: None (occurrence: None)
  Receive Date: 20060316
  Receipt Date: 20060307
  Transmission Date: 20060701
  Serious: Yes (Other)
  Sender: FDA-Public Use
  Company Number: US-BRISTOL-MYERS SQUIBB COMPANY-13306113

PATIENT
  Age: 80 Year
  Sex: Female
  Weight: 80 kg

DRUGS (6)
  1. COUMADIN [Suspect]
     Indication: ATRIAL FIBRILLATION
     Dosage: STARTED ON 3MG TAB DAILY IN NOV-2005, CURRENT DOSE = 6MG, 2 DAYS PER WEEK AND 4.5MG, 5 DAYS PER WEEK
     Dates: start: 00051101
  2. TOPROL-XL [Concomitant]
  3. GLUCOTROL [Concomitant]
  4. HYDROCHLOROTHIAZIDE [Concomitant]
  5. MICARDIS [Concomitant]
  6. KLOR-CON [Concomitant]

REACTIONS (3)
  - HAEMATURIA [None]
  - NEPHROLITHIASIS [None]
  - RENAL CYST [None]
